FAERS Safety Report 5806872-8 (Version None)
Quarter: 2008Q3

REPORT INFORMATION
  Report Type: 
  Country: None (occurrence: None)
  Receive Date: 20080711
  Receipt Date: 20080702
  Transmission Date: 20090109
  Serious: Yes (Other)
  Sender: FDA-Public Use
  Company Number: US-NOVOPROD-275581

PATIENT
  Age: 46 Year
  Sex: Female
  Weight: 105.9 kg

DRUGS (7)
  1. NOVOLIN N [Suspect]
     Indication: INSULIN-REQUIRING TYPE 2 DIABETES MELLITUS
     Dosage: 35 IU, QD
     Route: 058
     Dates: start: 20040501
  2. INSULIN LISPRO [Concomitant]
     Dosage: 5 IU, QD
     Dates: start: 20040501
  3. PIOGLITAZONE [Concomitant]
     Dosage: 30 MG, QD
     Dates: start: 20030101, end: 20040518
  4. LIDOCAINE [Concomitant]
     Indication: NEURALGIA
     Dosage: 5 %
  5. ENALAPRIL MALEATE [Concomitant]
     Dosage: 2.5 MG, QD
     Dates: end: 20040518
  6. METFORMIN HCL [Concomitant]
     Dosage: UNK, UNK
     Dates: start: 20010101, end: 20040518
  7. GLIPIZIDE [Concomitant]
     Dates: end: 20040518

REACTIONS (1)
  - ABORTION SPONTANEOUS [None]
